FAERS Safety Report 7031011-8 (Version None)
Quarter: 2010Q4

REPORT INFORMATION
  Report Type: 
  Country: None (occurrence: None)
  Receive Date: 20101006
  Receipt Date: 20100816
  Transmission Date: 20110411
  Serious: No
  Sender: FDA-Public Use
  Company Number: US-BRISTOL-MYERS SQUIBB COMPANY-15241748

PATIENT

DRUGS (1)
  1. KENALOG-40 [Suspect]
     Indication: POLYMORPHIC ERUPTION OF PREGNANCY

REACTIONS (1)
  - DRUG EXPOSURE VIA BREAST MILK [None]
